FAERS Safety Report 16268713 (Version 1)
Quarter: 2019Q2

REPORT INFORMATION
  Report Type: Spontaneous
  Country: US (occurrence: US)
  Receive Date: 20190329
  Receipt Date: 20190329
  Transmission Date: 20190711
  Serious: No
  Sender: FDA-Public Use
  Company Number: None

PATIENT
  Age: 65 Year
  Sex: Male

DRUGS (1)
  1. HEMP OIL 400MG BID CHERRY FLAVOR [Suspect]
     Active Substance: CANNABIS SATIVA SEED OIL
     Dosage: ?          OTHER DOSE:OUNCE ;?

REACTIONS (3)
  - Product use complaint [None]
  - Product quality issue [None]
  - Therapeutic product ineffective [None]
